FAERS Safety Report 4834101-0 (Version None)
Quarter: 2005Q4

REPORT INFORMATION
  Report Type: 
  Country: None (occurrence: None)
  Receive Date: 20051122
  Receipt Date: 20050929
  Transmission Date: 20060501
  Serious: Yes (Other)
  Sender: FDA-Public Use
  Company Number: 200518691GDDC

PATIENT
  Age: 66 Year
  Sex: Male

DRUGS (1)
  1. FLAGYL [Suspect]
     Dosage: DOSE: UNK
     Route: 048
     Dates: start: 20050720

REACTIONS (2)
  - SPEECH DISORDER [None]
  - TRANSIENT ISCHAEMIC ATTACK [None]
